FAERS Safety Report 16533581 (Version 1)
Quarter: 2019Q3

REPORT INFORMATION
  Report Type: Spontaneous
  Country: US (occurrence: US)
  Receive Date: 20190523
  Receipt Date: 20190523
  Transmission Date: 20191004
  Serious: Yes (Death)
  Sender: FDA-Public Use
  Company Number: None

PATIENT
  Age: 72 Year
  Sex: Male

DRUGS (1)
  1. POMALYST [Suspect]
     Active Substance: POMALIDOMIDE
     Indication: PLASMA CELL MYELOMA
     Route: 048
     Dates: start: 20180718, end: 20190403

REACTIONS (5)
  - Acute respiratory failure [None]
  - Respiratory failure [None]
  - Pneumonia [None]
  - Cardio-respiratory arrest [None]
  - Sepsis [None]

NARRATIVE: CASE EVENT DATE: 20190415
